FAERS Safety Report 6039167-0 (Version None)
Quarter: 2009Q1

REPORT INFORMATION
  Report Type: 
  Country: None (occurrence: None)
  Receive Date: 20090115
  Receipt Date: 20081201
  Transmission Date: 20090719
  Serious: Yes (Life-Threatening, Hospitalization, Other)
  Sender: FDA-Public Use
  Company Number: GB-PFIZER INC-2008081903

PATIENT

DRUGS (7)
  1. GABAPENTIN [Suspect]
  2. AMLODIPINE [Concomitant]
  3. DICLOFENAC SODIUM [Concomitant]
  4. DIHYDROCODEINE BITARTRATE INJ [Concomitant]
  5. FUROSEMIDE [Concomitant]
  6. IRBESARTAN [Concomitant]
  7. TRAMADOL HCL [Concomitant]

REACTIONS (5)
  - ANAEMIA [None]
  - LIVER FUNCTION TEST ABNORMAL [None]
  - LOSS OF CONSCIOUSNESS [None]
  - RENAL FAILURE [None]
  - SEPTIC SHOCK [None]
